FAERS Safety Report 9622079 (Version 1)
Quarter: 2013Q4

REPORT INFORMATION
  Report Type: Spontaneous
  Country: LV (occurrence: LV)
  Receive Date: 20131015
  Receipt Date: 20131015
  Transmission Date: 20140711
  Serious: Yes (Hospitalization)
  Sender: FDA-Public Use
  Company Number: LV-PFIZER INC-2013292199

PATIENT
  Age: 24 Year
  Sex: Female
  Weight: 55 kg

DRUGS (2)
  1. ZOLOFT [Suspect]
     Dosage: 650 MG, SINGLE
     Route: 048
     Dates: start: 20131006
  2. GRIPP-HEEL [Suspect]
     Dosage: 50 TABLETS, SINGLE
     Route: 048
     Dates: start: 20131006

REACTIONS (4)
  - Intentional overdose [Recovered/Resolved]
  - Suicide attempt [Recovered/Resolved]
  - Somnolence [Recovered/Resolved]
  - Anxiety [Recovered/Resolved]
